FAERS Safety Report 14134461 (Version 4)
Quarter: 2018Q1

REPORT INFORMATION
  Report Type: Report from Study
  Country: DE (occurrence: DE)
  Receive Date: 20171027
  Receipt Date: 20180307
  Transmission Date: 20180508
  Serious: Yes (Other)
  Sender: FDA-Public Use
  Company Number: DE-BRISTOL-MYERS SQUIBB COMPANY-BMS-2017-095581

PATIENT

DRUGS (1)
  1. APIXABAN [Suspect]
     Active Substance: APIXABAN
     Indication: PRODUCT USED FOR UNKNOWN INDICATION
     Dosage: 10 MG, BID
     Route: 065

REACTIONS (6)
  - Off label use [Unknown]
  - Varicose vein [Unknown]
  - Epistaxis [Unknown]
  - Thrombophlebitis [Unknown]
  - Traumatic haemorrhage [Unknown]
  - Haemorrhagic diathesis [Unknown]

NARRATIVE: CASE EVENT DATE: 20170911
